FAERS Safety Report 14016531 (Version 3)
Quarter: 2017Q4

REPORT INFORMATION
  Report Type: Report from Study
  Country: US (occurrence: US)
  Receive Date: 20170927
  Receipt Date: 20171116
  Transmission Date: 20180321
  Serious: Yes (Other)
  Sender: FDA-Public Use
  Company Number: US-SA-2017SA152406

PATIENT
  Age: 58 Year
  Sex: Female

DRUGS (1)
  1. LEMTRADA [Suspect]
     Active Substance: ALEMTUZUMAB
     Indication: MULTIPLE SCLEROSIS
     Route: 041
     Dates: start: 20170731, end: 20170804

REACTIONS (16)
  - Paraesthesia [Recovered/Resolved]
  - Hypertension [Not Recovered/Not Resolved]
  - Pain in extremity [Recovered/Resolved]
  - Vision blurred [Not Recovered/Not Resolved]
  - Bronchitis [Not Recovered/Not Resolved]
  - Cough [Not Recovered/Not Resolved]
  - Bone pain [Recovered/Resolved]
  - Limb discomfort [Not Recovered/Not Resolved]
  - Oedema peripheral [Not Recovered/Not Resolved]
  - Blood glucose increased [Not Recovered/Not Resolved]
  - Swelling [Recovering/Resolving]
  - Renal cancer [Not Recovered/Not Resolved]
  - Mobility decreased [Recovering/Resolving]
  - Fatigue [Not Recovered/Not Resolved]
  - Asthenia [Recovering/Resolving]
  - Pain [Recovered/Resolved]

NARRATIVE: CASE EVENT DATE: 2017
